FAERS Safety Report 6422986-6 (Version None)
Quarter: 2009Q4

REPORT INFORMATION
  Report Type: 
  Country: None (occurrence: None)
  Receive Date: 20091102
  Receipt Date: 20091021
  Transmission Date: 20100525
  Serious: Yes (Other)
  Sender: FDA-Public Use
  Company Number: ZA-JNJFOC-20091001902

PATIENT
  Sex: Male
  Weight: 102 kg

DRUGS (2)
  1. REVELLEX [Suspect]
     Indication: RHEUMATOID ARTHRITIS
     Route: 042
     Dates: start: 20050901, end: 20091007
  2. METHOTREXATE [Concomitant]
     Indication: RHEUMATOID ARTHRITIS

REACTIONS (2)
  - BASAL CELL CARCINOMA [None]
  - SQUAMOUS CELL CARCINOMA [None]
